FAERS Safety Report 4813975-3 (Version None)
Quarter: 2005Q4

REPORT INFORMATION
  Report Type: 
  Country: None (occurrence: None)
  Receive Date: 20051028
  Receipt Date: 20041207
  Transmission Date: 20060501
  Serious: No
  Sender: FDA-Public Use
  Company Number: US-GLAXOSMITHKLINE-A0536569A

PATIENT
  Age: 50 Year
  Sex: Male

DRUGS (6)
  1. SEREVENT [Suspect]
     Indication: ASTHMA
     Dosage: 1PUFF TWICE PER DAY
     Route: 055
  2. ALBUTEROL [Concomitant]
  3. CRIXIVAN [Concomitant]
  4. FLOVENT [Concomitant]
  5. COMBIVIR [Concomitant]
  6. ATROVENT [Concomitant]

REACTIONS (2)
  - DYSPNOEA [None]
  - FEELING ABNORMAL [None]
